FAERS Safety Report 7135359-8 (Version None)
Quarter: 2010Q4

REPORT INFORMATION
  Report Type: 
  Country: None (occurrence: None)
  Receive Date: 20101203
  Receipt Date: 20101130
  Transmission Date: 20110411
  Serious: Yes (Hospitalization, Disabling, Other)
  Sender: FDA-Public Use
  Company Number: FR-PFIZER INC-2010148739

PATIENT
  Age: 27 Year
  Sex: Female

DRUGS (2)
  1. CYTOTEC [Suspect]
     Indication: LABOUR INDUCTION
     Dosage: 50 UG, SINGLE
     Route: 067
     Dates: start: 20101110, end: 20101110
  2. TARDYFERON [Concomitant]
     Dosage: UNK

REACTIONS (2)
  - OFF LABEL USE [None]
  - UTERINE RUPTURE [None]
